FAERS Safety Report 17225239 (Version 1)
Quarter: 2020Q1

REPORT INFORMATION
  Report Type: Spontaneous
  Country: CN (occurrence: CN)
  Receive Date: 20200102
  Receipt Date: 20200102
  Transmission Date: 20200409
  Serious: Yes (Hospitalization)
  Sender: FDA-Public Use
  Company Number: CN-NOVOPROD-704087

PATIENT
  Age: 65 Year
  Sex: Female
  Weight: 47.5 kg

DRUGS (3)
  1. METFORMIN HYDROCHLORIDE. [Suspect]
     Active Substance: METFORMIN HYDROCHLORIDE
     Indication: TYPE 2 DIABETES MELLITUS
     Dosage: 0.5 G, TID
     Route: 048
     Dates: start: 20181201, end: 20191210
  2. ACARBOSE. [Suspect]
     Active Substance: ACARBOSE
     Indication: TYPE 2 DIABETES MELLITUS
     Dosage: 50 MG, TID
     Route: 048
     Dates: start: 20181201, end: 20191210
  3. NOVOLIN R [Suspect]
     Active Substance: INSULIN HUMAN
     Indication: TYPE 2 DIABETES MELLITUS
     Dosage: 40 IU, BID (BEFORE MEALS)
     Route: 058
     Dates: start: 20181201, end: 20191210

REACTIONS (2)
  - Hypoglycaemic coma [Recovering/Resolving]
  - Hypoglycaemic encephalopathy [Unknown]

NARRATIVE: CASE EVENT DATE: 20191210
